FAERS Safety Report 18773488 (Version 1)
Quarter: 2021Q1

REPORT INFORMATION
  Report Type: Spontaneous
  Country: US (occurrence: US)
  Receive Date: 20210121
  Receipt Date: 20210121
  Transmission Date: 20210419
  Serious: Yes (Hospitalization)
  Sender: FDA-Public Use
  Company Number: None

PATIENT
  Sex: Male

DRUGS (21)
  1. GILENYA [Suspect]
     Active Substance: FINGOLIMOD HYDROCHLORIDE
     Indication: MULTIPLE SCLEROSIS
     Route: 048
     Dates: start: 20171101
  2. ASPIRIN. [Concomitant]
     Active Substance: ASPIRIN
  3. GABAPENTIN. [Concomitant]
     Active Substance: GABAPENTIN
  4. GLUCOSAMINE [Concomitant]
     Active Substance: GLUCOSAMINE
  5. SYMBICORT AER [Concomitant]
  6. ASPIRIN 81 [Concomitant]
     Active Substance: ASPIRIN
  7. BACLOFEN. [Concomitant]
     Active Substance: BACLOFEN
  8. MODAFINIL. [Concomitant]
     Active Substance: MODAFINIL
  9. AIMOVIG [Concomitant]
     Active Substance: ERENUMAB-AOOE
  10. BUPROPN HCL [Concomitant]
     Active Substance: BUPROPION HYDROCHLORIDE
  11. LISINOPRIL. [Concomitant]
     Active Substance: LISINOPRIL
  12. OMERA [Concomitant]
  13. PROVIGIL [Concomitant]
     Active Substance: MODAFINIL
  14. DOXAZOSIN [Concomitant]
     Active Substance: DOXAZOSIN MESYLATE
  15. METOPROL TAR [Concomitant]
  16. BUTAL [Concomitant]
  17. OMERPAZOLE [Concomitant]
  18. RANITIDINE. [Concomitant]
     Active Substance: RANITIDINE
  19. VENTOLIN HFA AER [Concomitant]
  20. VERAPAMIL [Concomitant]
     Active Substance: VERAPAMIL HYDROCHLORIDE
  21. ESCITALOPRAM [Concomitant]
     Active Substance: ESCITALOPRAM OXALATE

REACTIONS (2)
  - Fall [None]
  - Hip fracture [None]
